FAERS Safety Report 21394471 (Version 1)
Quarter: 2022Q3

REPORT INFORMATION
  Report Type: Spontaneous
  Country: US (occurrence: US)
  Receive Date: 20220930
  Receipt Date: 20220930
  Transmission Date: 20221027
  Serious: Yes (Hospitalization)
  Sender: FDA-Public Use
  Company Number: US-AMGEN-USASP2022163186

PATIENT
  Age: 76 Year

DRUGS (1)
  1. PROLIA [Suspect]
     Active Substance: DENOSUMAB
     Indication: Osteoporosis
     Dosage: UNK UNK, Q6MO
     Route: 065
     Dates: start: 2020

REACTIONS (1)
  - Hip arthroplasty [Unknown]

NARRATIVE: CASE EVENT DATE: 20211202
